FAERS Safety Report 7934628-9 (Version None)
Quarter: 2011Q4

REPORT INFORMATION
  Report Type: 
  Country: None (occurrence: None)
  Receive Date: 20111122
  Receipt Date: 20110824
  Transmission Date: 20120403
  Serious: No
  Sender: FDA-Public Use
  Company Number: US-BAYER-2011-077702

PATIENT
  Age: 85 Year
  Sex: Male

DRUGS (2)
  1. GLUCOSAMINE [Concomitant]
  2. LEVITRA [Suspect]
     Indication: ERECTILE DYSFUNCTION
     Dosage: 10 MG, UNK
     Dates: start: 20110823, end: 20110823

REACTIONS (1)
  - DRUG INEFFECTIVE [None]
